FAERS Safety Report 6385189-X (Version None)
Quarter: 2009Q4

REPORT INFORMATION
  Report Type: 
  Country: None (occurrence: None)
  Receive Date: 20091002
  Receipt Date: 20090406
  Transmission Date: 20100525
  Serious: No
  Sender: FDA-Public Use
  Company Number: US-ASTRAZENECA-2007UW13612

PATIENT
  Age: 75 Year
  Sex: Female
  Weight: 63.5 kg

DRUGS (2)
  1. ARIMIDEX [Suspect]
     Indication: BREAST CANCER
     Route: 048
     Dates: start: 20070401, end: 20090301
  2. CEFTIN [Concomitant]

REACTIONS (12)
  - AMNESIA [None]
  - ARTHRITIS [None]
  - BACK PAIN [None]
  - BLADDER DISORDER [None]
  - BONE PAIN [None]
  - BRONCHITIS [None]
  - COUGH [None]
  - DIARRHOEA [None]
  - FEELING ABNORMAL [None]
  - OSTEOPENIA [None]
  - PALPITATIONS [None]
  - TEARFULNESS [None]
